FAERS Safety Report 7342559-0 (Version None)
Quarter: 2011Q1

REPORT INFORMATION
  Report Type: 
  Country: None (occurrence: None)
  Receive Date: 20110302
  Receipt Date: 20110215
  Transmission Date: 20110831
  Serious: Yes (Other)
  Sender: FDA-Public Use
  Company Number: AUR-APL-2010-02537

PATIENT
  Age: 72 Year
  Sex: Male
  Weight: 97 kg

DRUGS (13)
  1. ASPIRIN [Suspect]
     Dosage: 81MG-QD
     Dates: start: 20100915
  2. LEVOTHYROXINE [Suspect]
     Dosage: 75MCG, DAILY
  3. COQ10 100MG [Concomitant]
  4. WARFARIN 2MG TABLET [Suspect]
     Dosage: 2MG (2 TABS)-QHS-
     Dates: start: 20100915
  5. LEVOTHYROXINE [Suspect]
     Dosage: 75MCG-QD
  6. VITAMIN E 400 [Concomitant]
  7. POTASSIUM [Suspect]
     Dosage: 20MEQ-QD
     Dates: start: 20100915
  8. B COMPLEX LIQUID [Concomitant]
  9. ASCORBIC ACID [Concomitant]
  10. FISH OIL/OMEGA 3 [Concomitant]
  11. METOPROLOL 25MG TABLET [Suspect]
     Dosage: 25MG (1/2TAB)-QD-
     Dates: start: 20100915
  12. ALPHALIPOIC ACID [Concomitant]
  13. LIPITOR [Suspect]
     Dosage: 20MG,-QD
     Dates: start: 20100915

REACTIONS (15)
  - APPENDICECTOMY [None]
  - ATRIAL FIBRILLATION [None]
  - VASCULAR GRAFT [None]
  - CARDIAC OPERATION [None]
  - ASTHENIA [None]
  - CONFUSIONAL STATE [None]
  - MITRAL VALVE REPAIR [None]
  - POST PROCEDURAL SEPSIS [None]
  - PROTHROMBIN TIME PROLONGED [None]
  - INTERNATIONAL NORMALISED RATIO DECREASED [None]
  - CARDIAC PACEMAKER INSERTION [None]
  - THROMBOSIS [None]
  - GENERAL PHYSICAL HEALTH DETERIORATION [None]
  - HEART VALVE OPERATION [None]
  - BALANCE DISORDER [None]
